FAERS Safety Report 6180904-2 (Version None)
Quarter: 2009Q2

REPORT INFORMATION
  Report Type: 
  Country: None (occurrence: None)
  Receive Date: 20090428
  Receipt Date: 20090414
  Transmission Date: 20091009
  Serious: Yes (Hospitalization)
  Sender: FDA-Public Use
  Company Number: GAM-054-09-FR

PATIENT
  Age: 80 Year
  Sex: Female

DRUGS (1)
  1. OCTAGAM [Suspect]
     Indication: POLYNEUROPATHY
     Dosage: 30 G I.V.
     Route: 042
     Dates: start: 20090327, end: 20090329

REACTIONS (2)
  - NEUTROPENIA [None]
  - WHITE BLOOD CELL COUNT DECREASED [None]
